FAERS Safety Report 7737104-1 (Version None)
Quarter: 2011Q3

REPORT INFORMATION
  Report Type: 
  Country: None (occurrence: None)
  Receive Date: 20110908
  Receipt Date: 20110829
  Transmission Date: 20111222
  Serious: Yes (Other)
  Sender: FDA-Public Use
  Company Number: CA-JNJFOC-20110900188

PATIENT
  Age: 69 Year
  Sex: Female
  Weight: 66.23 kg

DRUGS (3)
  1. TYLENOL-500 [Suspect]
     Route: 048
  2. TYLENOL-500 [Suspect]
     Indication: PAIN
     Route: 048
     Dates: start: 20110823, end: 20110824
  3. PREMARIN [Concomitant]
     Route: 065

REACTIONS (3)
  - EXPIRED DRUG ADMINISTERED [None]
  - DYSPEPSIA [None]
  - HAEMATOCHEZIA [None]
